FAERS Safety Report 15599720 (Version 3)
Quarter: 2020Q3

REPORT INFORMATION
  Report Type: Spontaneous
  Country: FR (occurrence: FR)
  Receive Date: 20181108
  Receipt Date: 20200708
  Transmission Date: 20201102
  Serious: Yes (Hospitalization, Disabling, Other)
  Sender: FDA-Public Use
  Company Number: PHHY2018FR148917

PATIENT
  Age: 36 Year
  Sex: Male
  Weight: 80 kg

DRUGS (7)
  1. LIDOCAINE HYDROCHLORIDE. [Suspect]
     Active Substance: LIDOCAINE HYDROCHLORIDE
     Indication: DISCOGRAM
     Dosage: 10 DF, QD
     Route: 058
     Dates: start: 20170626, end: 20170626
  2. IOPAMIRON [Suspect]
     Active Substance: IOPAMIDOL
     Dosage: 10 ML,1X
     Route: 024
     Dates: start: 20170627, end: 20170627
  3. IOPAMIRON [Suspect]
     Active Substance: IOPAMIDOL
     Indication: DISCOGRAM
     Dosage: 10 ML,1X
     Route: 024
     Dates: start: 20170626, end: 20170626
  4. HYDROCORTANCYL [Suspect]
     Active Substance: PREDNISONE
     Indication: BACK PAIN
     Dosage: 1 ML, 1X
     Route: 024
     Dates: start: 20170626, end: 20170626
  5. HYDROCORTANCYL [Suspect]
     Active Substance: PREDNISONE
     Dosage: 1 ML,1X
     Route: 024
     Dates: start: 20170627, end: 20170627
  6. LIDOCAINE. [Concomitant]
     Active Substance: LIDOCAINE
     Indication: PRODUCT USED FOR UNKNOWN INDICATION
     Dosage: UNK
     Route: 065
  7. LIDOCAINE HYDROCHLORIDE. [Suspect]
     Active Substance: LIDOCAINE HYDROCHLORIDE
     Indication: ANAESTHESIA
     Dosage: 10 DF, QD
     Route: 030
     Dates: start: 20170627, end: 20170627

REACTIONS (9)
  - Pelvic pain [Unknown]
  - Spinal cord ischaemia [Unknown]
  - Pain in extremity [Unknown]
  - Motor dysfunction [Not Recovered/Not Resolved]
  - Sensory loss [Not Recovered/Not Resolved]
  - Bladder dysfunction [Not Recovered/Not Resolved]
  - Paraplegia [Not Recovered/Not Resolved]
  - Burning sensation [Not Recovered/Not Resolved]
  - Spinal pain [Unknown]

NARRATIVE: CASE EVENT DATE: 20170627
